FAERS Safety Report 9508476 (Version 1)
Quarter: 2013Q1

REPORT INFORMATION
  Report Type: Spontaneous
  Country: US (occurrence: None)
  Receive Date: 20130305
  Receipt Date: 20130305
  Transmission Date: 20140127
  Serious: Yes (Other)
  Sender: FDA-Public Use
  Company Number: 163-21880-12111111

PATIENT
  Age: 63 Year
  Sex: Female

DRUGS (11)
  1. REVLIMID [Suspect]
     Indication: 5Q MINUS SYNDROME
     Dosage: 1 IN 1 D
     Route: 048
     Dates: start: 200811
  2. CYMBALTA (DULOXETINE HYDROCHLORIDE) [Concomitant]
  3. CALTRATE-600 WITH D (CALCITE D) [Concomitant]
  4. NEURONTIN (GABAPENTIN) [Concomitant]
  5. TOPIRAMATE (TOPIRAMATE) [Concomitant]
  6. VITAMIN B12 (CYANOCOBALAMIN) [Concomitant]
  7. OMEGA 3-6-9 (PELAGO) [Concomitant]
  8. VITAMIN B6 (PYRIDOXINE HYDROCHLORIDE) [Concomitant]
  9. VITAMIN D (ERGOCALCIFEROL) [Concomitant]
  10. FOLIC ACID ( FOLIC ACID) [Concomitant]
  11. VITAMIN C [Concomitant]

REACTIONS (3)
  - Cough [None]
  - Bronchitis [None]
  - Hypokalaemia [None]
